FAERS Safety Report 5400419-6 (Version None)
Quarter: 2007Q3

REPORT INFORMATION
  Report Type: 
  Country: None (occurrence: None)
  Receive Date: 20070730
  Receipt Date: 20070718
  Transmission Date: 20080115
  Serious: Yes (Life-Threatening, Hospitalization, Other)
  Sender: FDA-Public Use
  Company Number: B0480752A

PATIENT
  Age: 57 Year
  Sex: Female

DRUGS (14)
  1. ACYCLOVIR [Suspect]
     Route: 042
     Dates: start: 20070322, end: 20070615
  2. BISOPROLOL FUMARATE [Concomitant]
     Dosage: 5MG PER DAY
     Route: 048
  3. CALCICHEW [Concomitant]
     Route: 065
  4. CALCIUM ACETATE [Concomitant]
     Route: 065
     Dates: start: 20070606
  5. CYCLOSPORINE [Concomitant]
     Dosage: 25MG TWICE PER DAY
     Route: 048
     Dates: start: 20070504, end: 20070619
  6. OMEPRAZOLE [Concomitant]
     Dosage: 20MG PER DAY
     Route: 048
  7. PARACETAMOL [Concomitant]
     Dosage: 1G AS REQUIRED
     Route: 048
  8. PREDNISOLONE [Concomitant]
     Dosage: 30MG PER DAY
     Route: 048
     Dates: start: 20070504
  9. VALPROATE SODIUM [Concomitant]
     Dosage: 300MG TWICE PER DAY
     Route: 048
     Dates: start: 20070619
  10. TITRALAC [Concomitant]
     Route: 065
  11. VANCOMYCIN [Concomitant]
     Route: 042
     Dates: start: 20070619, end: 20070701
  12. EPO [Concomitant]
     Dosage: 6000UNIT SEE DOSAGE TEXT
     Route: 058
  13. ONE-ALPHA [Concomitant]
     Dosage: .25MCG SEE DOSAGE TEXT
     Route: 058
  14. AQUEOUS CREAM [Concomitant]
     Route: 061

REACTIONS (2)
  - RENAL FAILURE CHRONIC [None]
  - TRANSPLANT REJECTION [None]
